FAERS Safety Report 25578721 (Version 3)
Quarter: 2025Q3

REPORT INFORMATION
  Report Type: Report from Study
  Country: US (occurrence: US)
  Receive Date: 20250718
  Receipt Date: 20250902
  Transmission Date: 20251021
  Serious: Yes (Hospitalization)
  Sender: TAIHO ONCOLOGY INC
  Company Number: US-TAIHOP-2025-007531

PATIENT
  Age: 68 Year
  Sex: Male

DRUGS (2)
  1. INQOVI [Suspect]
     Active Substance: CEDAZURIDINE\DECITABINE
     Indication: Chronic myelomonocytic leukaemia
     Dosage: 135MG (DECITABINE: 35 MG AND CEDAZURIDINE: 100 MG) ON DAYS 1-5 OF 28 DAY CYCLE.?CYCLE UNKNOWN.
     Route: 048
     Dates: start: 20250427
  2. VONJO [Concomitant]
     Active Substance: PACRITINIB
     Indication: Acute myeloid leukaemia
     Dates: start: 20250513

REACTIONS (2)
  - Gastric infection [Unknown]
  - Diverticulitis [Unknown]
